FAERS Safety Report 8649588 (Version 2)
Quarter: 2012Q4

REPORT INFORMATION
  Report Type: Report from Study
  Country: JP (occurrence: JP)
  Receive Date: 20120705
  Receipt Date: 20121001
  Transmission Date: 20130627
  Serious: Yes (Death, Hospitalization, Other)
  Sender: FDA-Public Use
  Company Number: PHHY2011JP110394

PATIENT
  Age: 74 Year
  Sex: Female
  Weight: 50 kg

DRUGS (17)
  1. ICL670A [Suspect]
     Indication: IRON OVERLOAD
     Dosage: 500 mg, daily
     Route: 048
     Dates: start: 20101214, end: 20110111
  2. ICL670A [Suspect]
     Dosage: 250 mg, daily
     Route: 048
     Dates: start: 20110308, end: 20110404
  3. ICL670A [Suspect]
     Dosage: 375 mg, daily
     Route: 048
     Dates: start: 20110405, end: 20110607
  4. NEORAL [Concomitant]
     Indication: APLASIA PURE RED CELL
     Dosage: 200 mg, UNK
     Route: 048
     Dates: start: 20101204, end: 20110607
  5. DIOVAN [Concomitant]
     Indication: HYPERTENSION
     Dosage: 40 mg, UNK
     Route: 048
     Dates: start: 20101204, end: 20110607
  6. PROMAC [Concomitant]
     Indication: GASTRITIS
     Dosage: 150 mg, UNK
     Route: 048
     Dates: start: 20101204, end: 20110607
  7. ACINON [Concomitant]
     Indication: GASTRITIS
     Dosage: 300 mg, UNK
     Route: 048
     Dates: start: 20101204, end: 20110607
  8. ALLOZYM [Concomitant]
     Indication: HYPERURICAEMIA
     Dosage: 100 mg, UNK
     Route: 048
     Dates: start: 20101204, end: 20110607
  9. FUROSEMIDE [Concomitant]
     Indication: CARDIAC FAILURE CHRONIC
     Dosage: 20 mg, UNK
     Route: 048
     Dates: start: 20101204, end: 20110607
  10. SPIRONOLACTONE [Concomitant]
     Indication: CARDIAC FAILURE CHRONIC
     Dosage: 25 mg, UNK
     Route: 048
     Dates: start: 20101204, end: 20110607
  11. RISPERIDONE [Concomitant]
     Indication: DEMENTIA
     Dosage: 0.5 mg, UNK
     Route: 048
     Dates: start: 20101204, end: 20110607
  12. ARTIST [Concomitant]
     Indication: HYPERTENSION
     Dosage: 2.5 mg, UNK
     Route: 048
     Dates: start: 20101204, end: 20110607
  13. ARICEPT [Concomitant]
     Indication: DEMENTIA
     Dosage: 5 mg, UNK
     Route: 048
     Dates: start: 20101204, end: 20110607
  14. FRANDOL [Concomitant]
     Indication: ANGINA PECTORIS
     Dosage: 40 mg, UNK
     Route: 065
     Dates: start: 20101204, end: 20110607
  15. RED BLOOD CELLS, CONCENTRATED [Concomitant]
     Dosage: 2 units every 4 to 8 weeks
     Route: 065
     Dates: start: 20110208, end: 20110308
  16. RED BLOOD CELLS, CONCENTRATED [Concomitant]
     Dosage: 2 units every 4 weeks
     Route: 065
     Dates: start: 20110308, end: 20110607
  17. RED BLOOD CELLS, CONCENTRATED [Concomitant]
     Dosage: 2 units every 1 to 2 weeks
     Route: 065
     Dates: start: 20110607, end: 20110704

REACTIONS (4)
  - Death [Fatal]
  - Fracture [Recovered/Resolved]
  - Fall [Unknown]
  - Renal impairment [Recovered/Resolved]
